FAERS Safety Report 21824690 (Version 2)
Quarter: 2023Q1

REPORT INFORMATION
  Report Type: Report from Study
  Country: NL (occurrence: NL)
  Receive Date: 20230105
  Receipt Date: 20230222
  Transmission Date: 20230417
  Serious: Yes (Hospitalization)
  Sender: FDA-Public Use
  Company Number: NL-TAKEDA-2021TUS023789

PATIENT
  Age: 38 Year
  Sex: Female
  Weight: 62.8 kg

DRUGS (11)
  1. BRENTUXIMAB VEDOTIN [Suspect]
     Active Substance: BRENTUXIMAB VEDOTIN
     Indication: Hodgkin^s disease
     Dosage: 77 MILLIGRAM, QD
     Route: 042
     Dates: start: 20210317
  2. BRENTUXIMAB VEDOTIN [Suspect]
     Active Substance: BRENTUXIMAB VEDOTIN
     Dosage: 113 MILLIGRAM, QD
     Route: 042
     Dates: start: 20210414
  3. DEXAMETHASONE [Concomitant]
     Active Substance: DEXAMETHASONE
     Indication: Hodgkin^s disease
     Dosage: 40 MILLIGRAM, QD
     Route: 048
     Dates: start: 20210415
  4. CYCLOPHOSPHAMIDE [Concomitant]
     Active Substance: CYCLOPHOSPHAMIDE
     Indication: Hodgkin^s disease
     Dosage: 2175 MILLIGRAM, QD
     Route: 042
     Dates: start: 20210415
  5. DACARBAZINE [Concomitant]
     Active Substance: DACARBAZINE
     Indication: Hodgkin^s disease
     Dosage: 656 MILLIGRAM, QD
     Route: 042
     Dates: start: 20210317
  6. DACARBAZINE [Concomitant]
     Active Substance: DACARBAZINE
     Dosage: 436 MILLIGRAM, QD
     Route: 042
     Dates: start: 20220416
  7. ETOPOSIDE [Concomitant]
     Active Substance: ETOPOSIDE
     Indication: Hodgkin^s disease
     Dosage: 262 MILLIGRAM, QD
     Route: 042
     Dates: start: 20210415
  8. VINBLASTINE [Concomitant]
     Active Substance: VINBLASTINE
     Indication: Hodgkin^s disease
     Dosage: 10.5 MILLIGRAM, QD
     Route: 042
     Dates: start: 20210317
  9. DOXORUBICIN HYDROCHLORIDE [Concomitant]
     Active Substance: DOXORUBICIN HYDROCHLORIDE
     Indication: Hodgkin^s disease
     Dosage: 43.8 MILLIGRAM, QD
     Route: 042
     Dates: start: 20210317
  10. DOXORUBICIN HYDROCHLORIDE [Concomitant]
     Active Substance: DOXORUBICIN HYDROCHLORIDE
     Dosage: 69.6 MILLIGRAM, QD
     Route: 042
     Dates: start: 20210415
  11. ONDANSETRON [Concomitant]
     Active Substance: ONDANSETRON
     Indication: Product used for unknown indication
     Dosage: UNK
     Route: 065

REACTIONS (2)
  - Mucosal inflammation [Recovered/Resolved]
  - Constipation [Recovered/Resolved]

NARRATIVE: CASE EVENT DATE: 20210408
